FAERS Safety Report 6800994-0 (Version None)
Quarter: 2010Q2

REPORT INFORMATION
  Report Type: 
  Country: None (occurrence: None)
  Receive Date: 20100629
  Receipt Date: 20100303
  Transmission Date: 20101027
  Serious: Yes (Other)
  Sender: FDA-Public Use
  Company Number: US-ASTRAZENECA-2009SE21946

PATIENT
  Age: 19128 Day

DRUGS (10)
  1. SEROQUEL [Suspect]
     Dosage: 25 MG, 200 MG, 400 MG DISPENSED
     Route: 048
     Dates: start: 20040329
  2. LEXAPRO [Concomitant]
     Dosage: 10 MG, 20 MG DISPENSED
     Dates: start: 20031119
  3. ANTABUSE [Concomitant]
     Dates: start: 20040216
  4. HYDROXYZINE PAM [Concomitant]
     Dates: start: 20040216
  5. TRILEPTAL [Concomitant]
     Dates: start: 20040329
  6. RISPERDAL [Concomitant]
     Dosage: 0.5 MG,1 MG DISPENSED
     Dates: start: 20040329
  7. METHOCARBAMOL [Concomitant]
     Dates: start: 20040723
  8. AMBIEN [Concomitant]
     Dates: start: 20040907
  9. NAPROXEN [Concomitant]
     Dates: start: 20080117
  10. WELLBUTRIN [Concomitant]
     Dates: start: 20080117

REACTIONS (4)
  - DIABETES MELLITUS INADEQUATE CONTROL [None]
  - DIABETIC NEUROPATHY [None]
  - NEUROPATHY PERIPHERAL [None]
  - TYPE 2 DIABETES MELLITUS [None]
